FAERS Safety Report 6808857-1 (Version None)
Quarter: 2010Q2

REPORT INFORMATION
  Report Type: 
  Country: None (occurrence: None)
  Receive Date: 20100630
  Receipt Date: 20090925
  Transmission Date: 20101027
  Serious: No
  Sender: FDA-Public Use
  Company Number: US-PFIZER INC-2009275670

PATIENT
  Sex: Female

DRUGS (2)
  1. VIAGRA [Suspect]
     Indication: SCLERODERMA
     Dosage: UNK
  2. VIAGRA [Suspect]
     Indication: CARDIOVASCULAR DISORDER

REACTIONS (1)
  - CYANOPSIA [None]
